FAERS Safety Report 9563629 (Version 1)
Quarter: 2013Q3

REPORT INFORMATION
  Report Type: Spontaneous
  Country: US (occurrence: None)
  Receive Date: 20130912
  Receipt Date: 20130912
  Transmission Date: 20140515
  Serious: Yes (Death)
  Sender: FDA-Public Use
  Company Number: 41562KS

PATIENT
  Age: 56 Year
  Sex: Male
  Weight: 93.9 kg

DRUGS (6)
  1. GLASSIA [Suspect]
     Route: 042
     Dates: start: 20121114
  2. CONBIVENT [Concomitant]
  3. FORADIL AEROLIZER [Concomitant]
  4. SPIRIVA [Concomitant]
  5. VIAGRA [Concomitant]
  6. NUVIGEL [Concomitant]

REACTIONS (1)
  - Death [None]
